FAERS Safety Report 21531232 (Version 1)
Quarter: 2022Q4

REPORT INFORMATION
  Report Type: Spontaneous
  Country: US (occurrence: None)
  Receive Date: 20221030
  Receipt Date: 20221030
  Transmission Date: 20230113
  Serious: Yes (Life-Threatening, Hospitalization, Other)
  Sender: FDA-Public Use
  Company Number: None

PATIENT
  Age: 35 Year
  Sex: Male
  Weight: 94.5 kg

DRUGS (1)
  1. CHLORPROMAZINE [Suspect]
     Active Substance: CHLORPROMAZINE
     Indication: Hiccups
     Dosage: OTHER QUANTITY : 2 TABLET(S);?FREQUENCY : EVERY 8 HOURS;?
     Route: 048

REACTIONS (3)
  - Somnolence [None]
  - Dyspnoea [None]
  - Enlarged uvula [None]

NARRATIVE: CASE EVENT DATE: 20221028
